FAERS Safety Report 16680998 (Version 1)
Quarter: 2019Q3

REPORT INFORMATION
  Report Type: Spontaneous
  Country: US (occurrence: US)
  Receive Date: 20190808
  Receipt Date: 20190808
  Transmission Date: 20191004
  Serious: No
  Sender: FDA-Public Use
  Company Number: US-B.I. PHARMACEUTICALS,INC./RIDGEFIELD-2019-US-001019

PATIENT
  Age: 76 Year
  Sex: Female

DRUGS (9)
  1. SPIRIVA RESPIMAT [Suspect]
     Active Substance: TIOTROPIUM BROMIDE
     Indication: ASTHMA
     Dosage: 1.24MCG 2 INHALATIONS DAILY
     Route: 065
     Dates: start: 201901
  2. VITAMIN D CAPLETS [Concomitant]
     Indication: VITAMIN SUPPLEMENTATION
     Dosage: 5000IU DAILY
     Route: 065
  3. OMEPRAZOLE. [Concomitant]
     Active Substance: OMEPRAZOLE
     Indication: GASTROOESOPHAGEAL REFLUX DISEASE
     Dosage: 40MG DAILY
     Route: 065
  4. ADVAIR HFA [Concomitant]
     Active Substance: FLUTICASONE PROPIONATE\SALMETEROL XINAFOATE
     Indication: ASTHMA
     Route: 065
  5. VITAMIN B12 [Concomitant]
     Active Substance: CYANOCOBALAMIN
     Indication: VITAMIN SUPPLEMENTATION
     Route: 065
  6. CLARITIN [Concomitant]
     Active Substance: LORATADINE
     Indication: ASTHMA
     Dosage: 10MG DAILY
     Route: 065
  7. TYLENOL ARTHRITIS PAIN [Concomitant]
     Active Substance: ACETAMINOPHEN
     Indication: FIBROMYALGIA
     Dosage: TWO CAPLETS BID
     Route: 065
  8. LEVOTHYROXINE TABLET [Concomitant]
     Active Substance: LEVOTHYROXINE
     Indication: HYPOTHYROIDISM
     Dosage: 50MCG DAILY
     Route: 065
  9. MAGNESIUM [Concomitant]
     Active Substance: MAGNESIUM
     Indication: MINERAL SUPPLEMENTATION
     Dosage: 200MG DAILY
     Route: 065

REACTIONS (3)
  - Nausea [Unknown]
  - Medication error [Recovered/Resolved]
  - Malaise [Unknown]

NARRATIVE: CASE EVENT DATE: 20190729
